FAERS Safety Report 24769043 (Version 2)
Quarter: 2024Q4

REPORT INFORMATION
  Report Type: Spontaneous
  Country: US (occurrence: US)
  Receive Date: 20241224
  Receipt Date: 20241224
  Transmission Date: 20250114
  Serious: Yes (Death)
  Sender: ROCHE
  Company Number: US-ROCHE-10000160390

PATIENT
  Sex: Male

DRUGS (20)
  1. ACTEMRA [Suspect]
     Active Substance: TOCILIZUMAB
     Indication: Interstitial lung disease
     Dosage: 162MG/0.9ML, FREQUENCY: NEVER FILLED.
     Route: 058
  2. ALBUTEROL [Concomitant]
     Active Substance: ALBUTEROL
  3. ASPIRIN [Concomitant]
     Active Substance: ASPIRIN
  4. ATORVASTATIN [Concomitant]
     Active Substance: ATORVASTATIN
  5. BENZONATATE [Concomitant]
     Active Substance: BENZONATATE
  6. BUDESONIDE [Concomitant]
     Active Substance: BUDESONIDE
     Dosage: 0.25MG/2ML
  7. VITAMINS [Concomitant]
     Active Substance: VITAMINS
  8. DONEPEZIL [Concomitant]
     Active Substance: DONEPEZIL
  9. ENTRESTO [Concomitant]
     Active Substance: SACUBITRIL\VALSARTAN
     Dosage: 24-26MG,
  10. FINASTERIDE [Concomitant]
     Active Substance: FINASTERIDE
  11. FOLIC ACID [Concomitant]
     Active Substance: FOLIC ACID
  12. FOSAMAX [Concomitant]
     Active Substance: ALENDRONATE SODIUM
  13. FUROSEMIDE [Concomitant]
     Active Substance: FUROSEMIDE
  14. IMODIUM A-D [Concomitant]
     Active Substance: LOPERAMIDE HYDROCHLORIDE
  15. JARDIANCE [Concomitant]
     Active Substance: EMPAGLIFLOZIN
  16. METOPROLOL [Concomitant]
     Active Substance: METOPROLOL
  17. MYCOPHENOLAT TBE [Concomitant]
  18. PANTOPRAZOLE [Concomitant]
     Active Substance: PANTOPRAZOLE
  19. TAMSULOSINH [Concomitant]
  20. VITAMIN D3 [Concomitant]
     Active Substance: CHOLECALCIFEROL
     Dosage: 1000 UNIT

REACTIONS (2)
  - Death [Fatal]
  - Off label use [Unknown]

NARRATIVE: CASE EVENT DATE: 20241214
